FAERS Safety Report 16770559 (Version 4)
Quarter: 2023Q1

REPORT INFORMATION
  Report Type: Spontaneous
  Country: GB (occurrence: GB)
  Receive Date: 20190904
  Receipt Date: 20230216
  Transmission Date: 20230417
  Serious: Yes (Life-Threatening, Hospitalization)
  Sender: FDA-Public Use
  Company Number: GB-EMA-DD-20190822-GANGAL_S-113059

PATIENT
  Age: 84 Year
  Sex: Male

DRUGS (18)
  1. DEXTROSE [Suspect]
     Active Substance: DEXTROSE
     Indication: Parenteral nutrition
     Dosage: UNK
     Route: 042
  2. WATER FOR INJECTION [Suspect]
     Active Substance: WATER
     Indication: Parenteral nutrition
     Dosage: UNK
     Route: 042
  3. SODIUM CHLORIDE [Suspect]
     Active Substance: SODIUM CHLORIDE
     Indication: Parenteral nutrition
     Dosage: UNK
     Route: 042
  4. SODIUM CHLORIDE [Suspect]
     Active Substance: SODIUM CHLORIDE
     Dosage: UNK
     Route: 050
  5. ADDAMEL N [Suspect]
     Active Substance: CHROMIC CHLORIDE\CUPROUS CHLORIDE\FERRIC CHLORIDE\MANGANESE CHLORIDE\POTASSIUM IODIDE\SODIUM FLUORID
     Indication: Parenteral nutrition
     Dosage: UNK
     Route: 042
  6. SOYBEAN OIL [Suspect]
     Active Substance: SOYBEAN OIL
     Indication: Parenteral nutrition
     Dosage: UNK
     Route: 042
  7. PROSOL [Suspect]
     Active Substance: ALANINE\ARGININE\ASPARTIC ACID\GLUTAMIC ACID\GLYCINE\HISTIDINE\ISOLEUCINE\LEUCINE\LYSINE ACETATE\MET
     Indication: Parenteral nutrition
     Dosage: UNK
     Route: 042
  8. OLIVE OIL [Suspect]
     Active Substance: OLIVE OIL
     Indication: Parenteral nutrition
     Dosage: UNK
     Route: 042
  9. VITAMINS [Suspect]
     Active Substance: VITAMINS
     Indication: Parenteral nutrition
     Dosage: UNK
     Route: 042
  10. ERGOCALCIFEROL\PHYTONADIONE\RETINOL\TOCOPHEROL [Suspect]
     Active Substance: ERGOCALCIFEROL\PHYTONADIONE\RETINOL\TOCOPHEROL
     Indication: Parenteral nutrition
     Dosage: UNK
     Route: 042
  11. MAGNESIUM SULFATE [Suspect]
     Active Substance: MAGNESIUM SULFATE
     Indication: Parenteral nutrition
     Dosage: UNK
     Route: 042
  12. POTASSIUM CHLORIDE [Suspect]
     Active Substance: POTASSIUM CHLORIDE
     Indication: Parenteral nutrition
     Dosage: 150 MG/ML
     Route: 042
  13. CALCIUM CHLORIDE [Suspect]
     Active Substance: CALCIUM CHLORIDE
     Indication: Parenteral nutrition
     Dosage: UNK
     Route: 042
  14. SODIUM GLYCEROPHOSPHATE [Suspect]
     Active Substance: SODIUM GLYCEROPHOSPHATE
     Indication: Parenteral nutrition
     Dosage: UNK
     Route: 042
  15. AMINO ACIDS, SOURCE UNSPECIFIED [Suspect]
     Active Substance: AMINO ACIDS, SOURCE UNSPECIFIED
     Indication: Parenteral nutrition
     Dosage: UNK
     Route: 042
  16. ALANINE [Suspect]
     Active Substance: ALANINE
     Indication: Parenteral nutrition
     Dosage: UNK
     Route: 050
  17. ELECTROLYTES NOS\MINERALS\SORBITOL [Suspect]
     Active Substance: ELECTROLYTES NOS\MINERALS\SORBITOL
     Indication: Parenteral nutrition
     Dosage: UNKNOWN
     Route: 050
  18. ARGININE HYDROCHLORIDE [Suspect]
     Active Substance: ARGININE HYDROCHLORIDE
     Indication: Parenteral nutrition
     Dosage: UNK
     Route: 050

REACTIONS (4)
  - Sepsis [Unknown]
  - Malaise [Unknown]
  - Cardiac arrest [Unknown]
  - Body temperature increased [Unknown]

NARRATIVE: CASE EVENT DATE: 20190701
